FAERS Safety Report 4385865-4 (Version None)
Quarter: 2004Q2

REPORT INFORMATION
  Report Type: 
  Country: None (occurrence: None)
  Receive Date: 20040622
  Receipt Date: 20040607
  Transmission Date: 20050107
  Serious: Yes (Death)
  Sender: FDA-Public Use
  Company Number: TNZUK200400052

PATIENT
  Age: 60 Year
  Sex: Female
  Weight: 89 kg

DRUGS (3)
  1. INNOHEP [Suspect]
     Indication: DEEP VENOUS THROMBOSIS PROPHYLAXIS
     Dosage: 3500 IU (3500 IU, 1 IN 1 D), SUBCUTANEOUS
     Route: 058
     Dates: start: 20021113, end: 20021202
  2. METFORMIN HCL [Concomitant]
  3. PAIN KILLERS [Concomitant]

REACTIONS (2)
  - DEEP VEIN THROMBOSIS [None]
  - PULMONARY EMBOLISM [None]
